FAERS Safety Report 8987261 (Version 1)
Quarter: 2012Q4

REPORT INFORMATION
  Report Type: 
  Country: FR (occurrence: FR)
  Receive Date: 20121227
  Receipt Date: 20121227
  Transmission Date: 20130627
  Serious: Yes (Hospitalization, Other)
  Sender: FDA-Public Use
  Company Number: FR-ELI_LILLY_AND_COMPANY-FR201212006874

PATIENT
  Sex: Male

DRUGS (1)
  1. UMULINE [Suspect]
     Route: 058

REACTIONS (6)
  - Blood glucose decreased [Recovered/Resolved]
  - Altered state of consciousness [Unknown]
  - Hyperhidrosis [Unknown]
  - Hyperglycaemia [Recovered/Resolved]
  - Dyspnoea [Unknown]
  - Incorrect dose administered [Recovered/Resolved]
